FAERS Safety Report 14931435 (Version 1)
Quarter: 2018Q2

REPORT INFORMATION
  Report Type: Spontaneous
  Country: FR (occurrence: FR)
  Receive Date: 20180524
  Receipt Date: 20180524
  Transmission Date: 20180711
  Serious: Yes (Other)
  Sender: FDA-Public Use
  Company Number: FR-MERCK KGAA-2048376

PATIENT
  Age: 78 Year
  Sex: Female

DRUGS (1)
  1. NOVOTHYROX [Suspect]
     Active Substance: LEVOTHYROXINE SODIUM
     Indication: HYPOTHYROIDISM
     Dates: end: 201711

REACTIONS (16)
  - Asthenia [None]
  - Fear of falling [None]
  - Pruritus [None]
  - Cardiac disorder [None]
  - Influenza [None]
  - Vertigo [None]
  - Hypergammaglobulinaemia [None]
  - Weight decreased [None]
  - Fatigue [None]
  - Balance disorder [None]
  - Immunodeficiency [None]
  - Malaise [None]
  - Amnesia [None]
  - Mental status changes [None]
  - Decreased activity [None]
  - Muscle spasms [None]

NARRATIVE: CASE EVENT DATE: 2017
